FAERS Safety Report 9283569 (Version 5)
Quarter: 2013Q4

REPORT INFORMATION
  Report Type: Spontaneous
  Country: US (occurrence: US)
  Receive Date: 20130510
  Receipt Date: 20131029
  Transmission Date: 20140711
  Serious: Yes (Hospitalization, Disabling, Other)
  Sender: FDA-Public Use
  Company Number: US-009507513-1305USA002391

PATIENT
  Sex: Female
  Weight: 83.18 kg

DRUGS (3)
  1. FOSAMAX [Suspect]
     Indication: OSTEOPOROSIS
     Dosage: 70 MG, QW
     Route: 048
     Dates: start: 20030510, end: 20070906
  2. ACTONEL [Concomitant]
     Indication: OSTEOPOROSIS
     Route: 048
  3. CALCIUM (UNSPECIFIED) [Concomitant]
     Dosage: UNK, DAILY
     Dates: start: 2003

REACTIONS (47)
  - Femur fracture [Unknown]
  - Surgery [Not Recovered/Not Resolved]
  - Post procedural complication [Not Recovered/Not Resolved]
  - Femur fracture [Recovered/Resolved]
  - Femur fracture [Recovered/Resolved]
  - Femur fracture [Unknown]
  - Foot fracture [Unknown]
  - Spinal osteoarthritis [Unknown]
  - Osteomalacia [Unknown]
  - Bursitis [Unknown]
  - Bursitis [Unknown]
  - Osteoarthritis [Unknown]
  - Spinal deformity [Unknown]
  - Weight bearing difficulty [Unknown]
  - Myofascial pain syndrome [Not Recovered/Not Resolved]
  - Ankle fracture [Unknown]
  - Spinal osteoarthritis [Unknown]
  - Intervertebral disc degeneration [Unknown]
  - Haemangioma of bone [Unknown]
  - Intervertebral disc protrusion [Unknown]
  - Tricuspid valve incompetence [Unknown]
  - Left atrial dilatation [Unknown]
  - Dilatation ventricular [Unknown]
  - Venous insufficiency [Unknown]
  - Ligament rupture [Unknown]
  - Epicondylitis [Unknown]
  - Insomnia [Not Recovered/Not Resolved]
  - Tendon rupture [Unknown]
  - Insulin resistance [Unknown]
  - Neuropathy peripheral [Unknown]
  - Restless legs syndrome [Unknown]
  - Pain [Not Recovered/Not Resolved]
  - Hepatic lesion [Unknown]
  - Hypertension [Unknown]
  - Osteopenia [Unknown]
  - Vitamin D deficiency [Unknown]
  - Muscle disorder [Unknown]
  - Rosacea [Unknown]
  - Anorectal disorder [Unknown]
  - Drug ineffective [Unknown]
  - Headache [Unknown]
  - Oedema peripheral [Not Recovered/Not Resolved]
  - Myalgia [Unknown]
  - Headache [Unknown]
  - Back pain [Not Recovered/Not Resolved]
  - Arthralgia [Recovering/Resolving]
  - Drug ineffective [Unknown]
